FAERS Safety Report 25177361 (Version 1)
Quarter: 2025Q2

REPORT INFORMATION
  Report Type: Spontaneous
  Country: US (occurrence: US)
  Receive Date: 20250409
  Receipt Date: 20250409
  Transmission Date: 20250717
  Serious: No
  Sender: ROCHE
  Company Number: US-ROCHE-10000249598

PATIENT
  Sex: Female

DRUGS (5)
  1. ACTEMRA [Suspect]
     Active Substance: TOCILIZUMAB
     Indication: Rheumatoid arthritis
     Route: 058
  2. ACTEMRA [Suspect]
     Active Substance: TOCILIZUMAB
  3. CELEBREX CAP 200MG [Concomitant]
  4. LIPITOR TAB 40 MG [Concomitant]
  5. LISINOPRIL TAB 40MG [Concomitant]

REACTIONS (1)
  - Pain [Not Recovered/Not Resolved]
